FAERS Safety Report 10016799 (Version 2)
Quarter: 2014Q1

REPORT INFORMATION
  Report Type: Spontaneous
  Country: US (occurrence: US)
  Receive Date: 20140318
  Receipt Date: 20140320
  Transmission Date: 20141002
  Serious: Yes (Death, Hospitalization)
  Sender: FDA-Public Use
  Company Number: CHPA2014US003921

PATIENT
  Sex: Female

DRUGS (2)
  1. PRIVATE LABEL STEP 1 21MG ACCT UNKNOWN [Suspect]
     Indication: SMOKING CESSATION THERAPY
     Dosage: 21 MG, QD
     Route: 062
     Dates: start: 1992, end: 1992
  2. ANAESTHETICS [Suspect]
     Dosage: UNK

REACTIONS (9)
  - Chronic obstructive pulmonary disease [Fatal]
  - Chronic respiratory disease [Fatal]
  - Coma [Recovered/Resolved]
  - Cardiac arrest [Recovered/Resolved]
  - Biliary tract disorder [Unknown]
  - Dehydration [Recovered/Resolved]
  - Abdominal pain upper [Recovered/Resolved]
  - Vomiting [Recovered/Resolved]
  - Diarrhoea [Recovered/Resolved]
